FAERS Safety Report 12925462 (Version 1)
Quarter: 2016Q4

REPORT INFORMATION
  Report Type: Not Available
  Country: IE (occurrence: IE)
  Receive Date: 20161109
  Receipt Date: 20161109
  Transmission Date: 20170207
  Serious: Yes (Death)
  Sender: FDA-Public Use
  Company Number: IE-AKORN-42945

PATIENT
  Sex: Male

DRUGS (1)
  1. FENTANYL CITRATE INJECTION, USP [Suspect]
     Active Substance: FENTANYL CITRATE

REACTIONS (2)
  - Overdose [None]
  - Death [None]
